FAERS Safety Report 25617917 (Version 1)
Quarter: 2025Q3

REPORT INFORMATION
  Report Type: Spontaneous
  Country: EG (occurrence: EG)
  Receive Date: 20250729
  Receipt Date: 20250729
  Transmission Date: 20251021
  Serious: Yes (Life-Threatening, Other)
  Sender: ELI LILLY AND COMPANY
  Company Number: EG-Merck Healthcare KGaA-2025037231

PATIENT
  Age: 51 Year
  Sex: Female
  Weight: 88 kg

DRUGS (7)
  1. ERBITUX [Suspect]
     Active Substance: CETUXIMAB
     Indication: Colorectal cancer metastatic
     Dosage: 1000 MG, 2/M
     Route: 042
     Dates: start: 20250601
  2. LEUCOVORIN CALCIUM [Suspect]
     Active Substance: LEUCOVORIN CALCIUM
     Indication: Colorectal cancer metastatic
     Dosage: 400 MG, 2/M
     Route: 042
     Dates: start: 20250601
  3. FLUOROURACIL [Suspect]
     Active Substance: FLUOROURACIL
     Indication: Colorectal cancer metastatic
     Dosage: 2000 MG, 2/M
     Route: 042
     Dates: start: 20250601
  4. OXALIPLATIN [Suspect]
     Active Substance: OXALIPLATIN
     Indication: Colorectal cancer metastatic
     Dosage: 170 MG, 2/M
     Route: 042
     Dates: start: 20250601
  5. DEXAMETHASONE [Concomitant]
     Active Substance: DEXAMETHASONE
     Indication: Premedication
  6. EMEX [DOMPERIDONE] [Concomitant]
     Indication: Premedication
  7. PIRAFENE [Concomitant]
     Indication: Premedication

REACTIONS (4)
  - Thrombocytopenia [Not Recovered/Not Resolved]
  - Neutropenia [Not Recovered/Not Resolved]
  - Leukopenia [Not Recovered/Not Resolved]
  - Off label use [Unknown]

NARRATIVE: CASE EVENT DATE: 20250616
